FAERS Safety Report 11394576 (Version 1)
Quarter: 2015Q3

REPORT INFORMATION
  Report Type: Spontaneous
  Country: US (occurrence: None)
  Receive Date: 20150817
  Receipt Date: 20150817
  Transmission Date: 20151125
  Serious: Yes (Hospitalization)
  Sender: FDA-Public Use
  Company Number: None

PATIENT
  Age: 56 Year
  Sex: Female
  Weight: 63.5 kg

DRUGS (9)
  1. GEMZAR [Concomitant]
     Active Substance: GEMCITABINE HYDROCHLORIDE
  2. NEULASTA [Suspect]
     Active Substance: PEGFILGRASTIM
     Indication: WHITE BLOOD CELL COUNT DECREASED
     Dosage: INTO THE MUSCLE
     Dates: start: 20120912
  3. DEXAMETHASONE. [Concomitant]
     Active Substance: DEXAMETHASONE
  4. CHEMO [Concomitant]
     Active Substance: UNSPECIFIED INGREDIENT
  5. CISPLATION [Concomitant]
  6. NEULASTA [Suspect]
     Active Substance: PEGFILGRASTIM
     Indication: OVARIAN CANCER
     Dosage: INTO THE MUSCLE
     Dates: start: 20120912
  7. MEDIPORT [Concomitant]
  8. PEPCID [Concomitant]
     Active Substance: FAMOTIDINE
  9. PROCHLORPERAZINE. [Concomitant]
     Active Substance: PROCHLORPERAZINE

REACTIONS (4)
  - Immunosuppression [None]
  - Fungal infection [None]
  - Vasculitis [None]
  - Asthenia [None]

NARRATIVE: CASE EVENT DATE: 20120917
